FAERS Safety Report 11042720 (Version 1)
Quarter: 2015Q2

REPORT INFORMATION
  Report Type: Spontaneous
  Country: TR (occurrence: TR)
  Receive Date: 20150416
  Receipt Date: 20150416
  Transmission Date: 20150821
  Serious: Yes (Other)
  Sender: FDA-Public Use
  Company Number: PHHY2015TR044875

PATIENT
  Age: 11 Year
  Sex: Female

DRUGS (4)
  1. VALPROATE [Concomitant]
     Active Substance: VALPROATE SODIUM
     Indication: PRODUCT USED FOR UNKNOWN INDICATION
     Route: 065
  2. TOPIRAMATE. [Concomitant]
     Active Substance: TOPIRAMATE
     Indication: SKIN PLAQUE
     Route: 065
  3. FLUOXETINE [Suspect]
     Active Substance: FLUOXETINE\FLUOXETINE HYDROCHLORIDE
     Indication: ANXIETY
     Dosage: 10 MG, QD
     Route: 065
  4. METHYLPREDNISOLONE. [Concomitant]
     Active Substance: METHYLPREDNISOLONE
     Indication: SKIN PLAQUE
     Route: 065

REACTIONS (4)
  - Muscle spasms [Recovered/Resolved]
  - Extrapyramidal disorder [Recovered/Resolved]
  - Arthralgia [Recovered/Resolved]
  - Akathisia [Recovered/Resolved]
